FAERS Safety Report 20997249 (Version 1)
Quarter: 2022Q2

REPORT INFORMATION
  Report Type: Spontaneous
  Country: JP (occurrence: JP)
  Receive Date: 20220623
  Receipt Date: 20220623
  Transmission Date: 20220721
  Serious: Yes (Other)
  Sender: FDA-Public Use
  Company Number: JP-SA-2022SA236713

PATIENT
  Age: 40 Year
  Sex: Female

DRUGS (1)
  1. DUPIXENT [Suspect]
     Active Substance: DUPILUMAB
     Indication: Erythrodermic atopic dermatitis
     Dosage: UNK
     Route: 058

REACTIONS (3)
  - Cutaneous T-cell lymphoma [Unknown]
  - Skin mass [Unknown]
  - Lymphadenopathy [Unknown]
